FAERS Safety Report 20336120 (Version 3)
Quarter: 2022Q1

REPORT INFORMATION
  Report Type: Spontaneous
  Country: US (occurrence: None)
  Receive Date: 20220114
  Receipt Date: 20220218
  Transmission Date: 20220423
  Serious: No
  Sender: FDA-Public Use
  Company Number: US-Merz Pharmaceuticals GmbH-22-00049

PATIENT
  Age: 53 Year
  Sex: Female
  Weight: 68 kg

DRUGS (7)
  1. XEOMIN [Suspect]
     Active Substance: INCOBOTULINUMTOXINA
     Indication: Skin wrinkling
     Route: 030
     Dates: start: 2021, end: 2021
  2. XEOMIN [Suspect]
     Active Substance: INCOBOTULINUMTOXINA
     Indication: Skin wrinkling
     Route: 030
  3. Belotero Balance Lidocaine US [Concomitant]
     Indication: Skin wrinkling
     Route: 058
     Dates: start: 20211103, end: 20211103
  4. Belotero Balance Lidocaine US [Concomitant]
     Indication: Lip cosmetic procedure
     Dosage: 1 ML NASOLABIAL FOLDS?1 ML INTO THE UPPER AND LOWER LIP
     Route: 058
     Dates: start: 20211109, end: 20211109
  5. Belotero Balance Lidocaine US [Concomitant]
     Indication: Lip cosmetic procedure
     Dosage: 1 ML NASOLABIAL FOLDS?1 ML INTO THE UPPER AND LOWER LIP
     Route: 058
     Dates: start: 20211109, end: 20211109
  6. Belotero Balance Lidocaine US [Concomitant]
     Dosage: 1 ML NASOLABIAL FOLDS?1 ML INTO THE UPPER AND LOWER LIP
     Route: 058
  7. Belotero Balance Lidocaine US [Concomitant]
     Dosage: 1 ML NASOLABIAL FOLDS?1 ML INTO THE UPPER AND LOWER LIP
     Route: 058

REACTIONS (3)
  - Drug ineffective [Unknown]
  - Suspected product quality issue [Unknown]
  - Off label use [Unknown]

NARRATIVE: CASE EVENT DATE: 20210101
